FAERS Safety Report 16589827 (Version 1)
Quarter: 2019Q3

REPORT INFORMATION
  Report Type: Other
  Country: US (occurrence: US)
  Receive Date: 20190718
  Receipt Date: 20190718
  Transmission Date: 20191004
  Serious: No
  Sender: FDA-Public Use
  Company Number: US-SWEDISH ORPHAN BIOVITRUM-2019US1025

PATIENT
  Sex: Female

DRUGS (1)
  1. KINERET [Suspect]
     Active Substance: ANAKINRA
     Indication: SJOGREN^S SYNDROME
     Route: 058
     Dates: start: 20190419

REACTIONS (2)
  - Off label use [Not Recovered/Not Resolved]
  - Injection site reaction [Unknown]
